FAERS Safety Report 18234660 (Version 3)
Quarter: 2020Q3

REPORT INFORMATION
  Report Type: Spontaneous
  Country: BG (occurrence: BG)
  Receive Date: 20200904
  Receipt Date: 20200916
  Transmission Date: 20201103
  Serious: Yes (Death, Other)
  Sender: FDA-Public Use
  Company Number: BG-MYLANLABS-2020M1076287

PATIENT
  Age: 19 Year
  Sex: Male

DRUGS (36)
  1. VITAMIN C [Suspect]
     Active Substance: ASCORBIC ACID
     Indication: PRODUCT USED FOR UNKNOWN INDICATION
     Dosage: UNK(10 5 5 ML 2X4 AMP)
     Route: 065
  2. ROACTEMRA [Suspect]
     Active Substance: TOCILIZUMAB
     Indication: COVID-19 PNEUMONIA
     Dosage: UNK(200 MG/20ML)
     Route: 065
     Dates: start: 20200101
  3. DIFLAZON [Suspect]
     Active Substance: FLUCONAZOLE
     Indication: PRODUCT USED FOR UNKNOWN INDICATION
     Dosage: UNK(2 MG/1 ML ? 100 ML ? X 2 VIAL)
     Route: 065
  4. ENTEROL                            /00838001/ [Suspect]
     Active Substance: SACCHAROMYCES CEREVISIAE
     Indication: PRODUCT USED FOR UNKNOWN INDICATION
     Dosage: UNK(250 MG 10 ? 2X2 CAPS)
     Route: 065
  5. CLEXANE [Suspect]
     Active Substance: ENOXAPARIN SODIUM
     Indication: PRODUCT USED FOR UNKNOWN INDICATION
     Dosage: UNK(60 MG/0.60 ML ? X1VIAL)
     Route: 065
  6. SODIUM CHLORIDE. [Suspect]
     Active Substance: SODIUM CHLORIDE
     Indication: PRODUCT USED FOR UNKNOWN INDICATION
     Dosage: 0.9 PERCENT(100 ML ECO?BOTTLE BY PRESCRIPTION)
     Route: 065
  7. ROACTEMRA [Suspect]
     Active Substance: TOCILIZUMAB
     Dosage: UNK(400 MG/20 ML)
     Route: 065
     Dates: start: 2020
  8. MIDAZOLAM. [Suspect]
     Active Substance: MIDAZOLAM
     Indication: PRODUCT USED FOR UNKNOWN INDICATION
     Dosage: UNK(5 MG ? 5 5 ML ? IN PERFUSION)
     Route: 065
  9. METAMIZOLE [Suspect]
     Active Substance: METAMIZOLE
     Dosage: UNK(X 2 CAPS AMP. 500MG/ML 2 ML)
     Route: 065
  10. SOMAZINA                           /00434801/ [Suspect]
     Active Substance: CITICOLINE
     Indication: PRODUCT USED FOR UNKNOWN INDICATION
     Dosage: 1000 MILLIGRAM(1000 MG 4 ML 2X1 AMP)
     Route: 065
  11. METAMIZOLE [Suspect]
     Active Substance: METAMIZOLE
     Indication: PRODUCT USED FOR UNKNOWN INDICATION
     Dosage: UNK(X 2 CAPS)
     Route: 065
  12. SERUM GLUCOSE [Suspect]
     Active Substance: DEXTROSE
     Indication: PRODUCT USED FOR UNKNOWN INDICATION
     Dosage: 500 MILLILITER(BY PRESCRIPTION)
     Route: 042
  13. SUMAMED [Suspect]
     Active Substance: AZITHROMYCIN ANHYDROUS
     Indication: PRODUCT USED FOR UNKNOWN INDICATION
     Dosage: 500 MILLIGRAM
     Route: 065
  14. FRAXIPARINE [Suspect]
     Active Substance: NADROPARIN CALCIUM
     Indication: PRODUCT USED FOR UNKNOWN INDICATION
     Dosage: 0.6 MILLILITER(1 VIAL MG/ML AS PRESCRIBED)
     Route: 065
  15. MEROPEN                            /01250501/ [Suspect]
     Active Substance: MEROPENEM
     Dosage: 1 GRAM(3X1.0)
     Route: 065
  16. DEGAN [Suspect]
     Active Substance: METOCLOPRAMIDE HYDROCHLORIDE
     Indication: PRODUCT USED FOR UNKNOWN INDICATION
     Dosage: UNK(10 MG ? 2 ML ? AS PRESCRIBED)
     Route: 065
  17. AZITROX [Suspect]
     Active Substance: AZITHROMYCIN
     Indication: PRODUCT USED FOR UNKNOWN INDICATION
     Dosage: UNK
     Route: 065
  18. METHYLPREDNISOLONE. [Suspect]
     Active Substance: METHYLPREDNISOLONE
     Indication: PRODUCT USED FOR UNKNOWN INDICATION
     Dosage: UNK(40 MG / 2 ML)
     Route: 065
  19. ESOMEPRAZOLE. [Suspect]
     Active Substance: ESOMEPRAZOLE MAGNESIUM
     Indication: PRODUCT USED FOR UNKNOWN INDICATION
     Dosage: 40 MILLIGRAM(2X1 VIAL)
     Route: 065
  20. QUAMATEL [Suspect]
     Active Substance: FAMOTIDINE
     Indication: PRODUCT USED FOR UNKNOWN INDICATION
     Dosage: 20 MILLIGRAM(2X1 VIAL)
     Route: 065
  21. BROMHEXINE [Suspect]
     Active Substance: BROMHEXINE
     Indication: PRODUCT USED FOR UNKNOWN INDICATION
     Dosage: UNK(4 MG 2 ML ? AS PRESCRIBED)
     Route: 065
  22. FLEXIDOL RELAX [Suspect]
     Active Substance: MELOXICAM\PRIDINOL MESILATE
     Indication: PRODUCT USED FOR UNKNOWN INDICATION
     Dosage: 100 MILLILITER(5 MG/ML)
     Route: 065
  23. CALCIUM GLUCONATE. [Suspect]
     Active Substance: CALCIUM GLUCONATE
     Indication: PRODUCT USED FOR UNKNOWN INDICATION
     Dosage: 8.94 MILLIGRAM PER MILLILITRE(8.94 MG/ML ? 10 ML ? 2X1 AMP)
     Route: 065
  24. CHLOROQUINE PHOSPHATE. [Suspect]
     Active Substance: CHLOROQUINE PHOSPHATE
     Indication: PRODUCT USED FOR UNKNOWN INDICATION
     Dosage: 250 MILLIGRAM(2X1 TABLETS?)
     Route: 065
  25. MEROPENEM. [Suspect]
     Active Substance: MEROPENEM
     Indication: PRODUCT USED FOR UNKNOWN INDICATION
     Dosage: 1 GRAM(3X1.0)
     Route: 065
  26. PARACETAMOL [Suspect]
     Active Substance: ACETAMINOPHEN
     Indication: PRODUCT USED FOR UNKNOWN INDICATION
     Dosage: 100 MILLILITER(10 MG/ML)
     Route: 065
  27. SINEQUAN [Suspect]
     Active Substance: DOXEPIN HYDROCHLORIDE
     Indication: PRODUCT USED FOR UNKNOWN INDICATION
     Dosage: UNK(X 2 CAPS)
     Route: 065
  28. FUROSEMIDE. [Suspect]
     Active Substance: FUROSEMIDE
     Indication: PRODUCT USED FOR UNKNOWN INDICATION
     Dosage: 10 MILLIGRAM PER MILLILITRE(10 MG/ML ? AS PRESCRIBED)
     Route: 065
  29. CHLOPHAZOLIN [Suspect]
     Active Substance: CLONIDINE HYDROCHLORIDE
     Indication: PRODUCT USED FOR UNKNOWN INDICATION
     Dosage: 0.15 MILLIGRAM PER MILLILITRE(0.15 MG/ML ? AS PRESCRIBED)
     Route: 065
  30. NUTRIFLEX OMEGA PLUS [Suspect]
     Active Substance: AMINO ACIDS\DEXTROSE\ELECTROLYTES NOS\SOYBEAN OIL
     Indication: PRODUCT USED FOR UNKNOWN INDICATION
     Dosage: UNK(875 ML ? 2 PCS)
     Route: 065
  31. VANCOCIN [Suspect]
     Active Substance: VANCOMYCIN HYDROCHLORIDE
     Indication: PRODUCT USED FOR UNKNOWN INDICATION
     Dosage: 1 GRAM(2X1.0)
     Route: 065
  32. STEROFUNDIN [Suspect]
     Active Substance: CALCIUM CHLORIDE\MAGNESIUM CHLORIDE\POTASSIUM CHLORIDE\SODIUM ACETATE\SODIUM CHLORIDE
     Indication: PRODUCT USED FOR UNKNOWN INDICATION
     Dosage: UNK(500 L ? ECO?VIAL ? X500 ML)
     Route: 065
  33. CARSIL [Suspect]
     Active Substance: DIETARY SUPPLEMENT\HERBALS\MILK THISTLE
     Indication: PRODUCT USED FOR UNKNOWN INDICATION
     Dosage: UNK990 MG 30 PCS. ? ACCORDING TO THE SCHEME)
     Route: 065
  34. MEROPEN                            /01250501/ [Suspect]
     Active Substance: MEROPENEM
     Indication: PRODUCT USED FOR UNKNOWN INDICATION
     Dosage: 1000 MILLIGRAM(3X1.0)
     Route: 065
  35. ALBUNORM [Suspect]
     Active Substance: ALBUMIN HUMAN
     Indication: PRODUCT USED FOR UNKNOWN INDICATION
     Dosage: 10 PERCENT, TOTAL
     Route: 065
  36. DEXAMETHASONE. [Suspect]
     Active Substance: DEXAMETHASONE
     Indication: PRODUCT USED FOR UNKNOWN INDICATION
     Dosage: UNK(4 MG/1 ML ? 2X2 AMP)
     Route: 065

REACTIONS (9)
  - Acute respiratory failure [Fatal]
  - Hypoxia [Unknown]
  - Hypertension [Unknown]
  - Cardiac arrest [Unknown]
  - Intentional product use issue [Unknown]
  - Hallucination [Unknown]
  - Tachypnoea [Unknown]
  - Confusional state [Unknown]
  - Off label use [Unknown]

NARRATIVE: CASE EVENT DATE: 20200731
